FAERS Safety Report 13046420 (Version 1)
Quarter: 2016Q4

REPORT INFORMATION
  Report Type: Spontaneous
  Country: NL (occurrence: NL)
  Receive Date: 20161220
  Receipt Date: 20161220
  Transmission Date: 20170207
  Serious: Yes (Life-Threatening, Hospitalization, Disabling)
  Sender: FDA-Public Use
  Company Number: NL-JNJFOC-20161215068

PATIENT
  Age: 13 Year
  Sex: Male
  Weight: 82 kg

DRUGS (19)
  1. PLANTAGO OVATA [Concomitant]
     Active Substance: PLANTAGO OVATA LEAF
     Route: 048
  2. TRIAMCINOLONACETONIDE [Concomitant]
     Active Substance: TRIAMCINOLONE ACETONIDE
     Route: 003
  3. OXAZEPAM. [Suspect]
     Active Substance: OXAZEPAM
     Indication: PRODUCT USED FOR UNKNOWN INDICATION
     Route: 048
  4. HALDOL [Concomitant]
     Active Substance: HALOPERIDOL
     Route: 048
  5. TAVEGYL [Concomitant]
     Active Substance: CLEMASTINE FUMARATE
     Route: 048
  6. RISPERIDON [Suspect]
     Active Substance: RISPERIDONE
     Indication: AUTISM SPECTRUM DISORDER
     Route: 048
     Dates: start: 19971005
  7. SEROQUEL [Concomitant]
     Active Substance: QUETIAPINE FUMARATE
     Route: 048
  8. RISPERIDON [Suspect]
     Active Substance: RISPERIDONE
     Indication: AUTISM SPECTRUM DISORDER
     Dosage: DOSE REDUCED
     Route: 048
  9. ABILIFY [Concomitant]
     Active Substance: ARIPIPRAZOLE
     Route: 048
  10. FLIXONASE [Concomitant]
     Active Substance: FLUTICASONE PROPIONATE
     Route: 045
  11. ORAP [Concomitant]
     Active Substance: PIMOZIDE
     Route: 048
  12. BRINTELLIX [Suspect]
     Active Substance: VORTIOXETINE HYDROBROMIDE
     Indication: DEPRESSION
     Route: 048
  13. OXAZEPAM. [Suspect]
     Active Substance: OXAZEPAM
     Indication: PRODUCT USED FOR UNKNOWN INDICATION
     Route: 048
  14. HYDROCOBAMINE [Concomitant]
     Active Substance: HYDROXOCOBALAMIN HYDROCHLORIDE
     Route: 065
  15. INVEGA [Concomitant]
     Active Substance: PALIPERIDONE
     Route: 048
  16. DIAZEPAM. [Concomitant]
     Active Substance: DIAZEPAM
     Route: 048
  17. DIVISUN [Concomitant]
     Route: 048
  18. ATORVASTATIN CALCIUM TRIHYDRATE [Concomitant]
     Active Substance: ATORVASTATIN CALCIUM
     Route: 048
  19. CITALOPRAM HYDROBROMIDE. [Suspect]
     Active Substance: CITALOPRAM HYDROBROMIDE
     Indication: DEPRESSION
     Route: 048

REACTIONS (7)
  - Product use issue [Unknown]
  - Social problem [Not Recovered/Not Resolved]
  - Weight increased [Recovered/Resolved with Sequelae]
  - Skin disorder [Not Recovered/Not Resolved]
  - Suicide attempt [Unknown]
  - Learning disability [Unknown]
  - Off label use [Unknown]

NARRATIVE: CASE EVENT DATE: 19980418
